FAERS Safety Report 4327583-4 (Version None)
Quarter: 2004Q1

REPORT INFORMATION
  Report Type: 
  Country: None (occurrence: None)
  Receive Date: 20040325
  Receipt Date: 20040309
  Transmission Date: 20041129
  Serious: Yes (Hospitalization)
  Sender: FDA-Public Use
  Company Number: 2004AP00686

PATIENT
  Age: 59 Year
  Sex: Male

DRUGS (9)
  1. IRESSA [Suspect]
     Indication: LUNG ADENOCARCINOMA
     Dosage: 250 MG DAILY PO
     Route: 048
     Dates: start: 20030715, end: 20030804
  2. IRESSA [Suspect]
     Indication: NON-SMALL CELL LUNG CANCER
     Dosage: 250 MG DAILY PO
     Route: 048
     Dates: start: 20030715, end: 20030804
  3. IRESSA [Suspect]
     Indication: ADENOCARCINOMA
     Dosage: 250 MG DAILY PO
     Route: 048
     Dates: start: 20030811, end: 20030912
  4. IRESSA [Suspect]
     Indication: NON-SMALL CELL LUNG CANCER
     Dosage: 250 MG DAILY PO
     Route: 048
     Dates: start: 20030811, end: 20030912
  5. CARBOPLATIN [Concomitant]
  6. TAXOL [Concomitant]
  7. GEMZAR [Concomitant]
  8. NAVELBINE [Concomitant]
  9. RADIATION THERAPY [Concomitant]

REACTIONS (3)
  - DISEASE PROGRESSION [None]
  - KERATITIS [None]
  - NASOPHARYNGITIS [None]
